FAERS Safety Report 9013827 (Version 1)
Quarter: 2013Q1

REPORT INFORMATION
  Report Type: Spontaneous
  Country: US (occurrence: US)
  Receive Date: 20130115
  Receipt Date: 20130115
  Transmission Date: 20140127
  Serious: Yes (Hospitalization)
  Sender: FDA-Public Use
  Company Number: US-BAYER-2013-003893

PATIENT
  Age: 37 Year
  Sex: Female
  Weight: 60 kg

DRUGS (6)
  1. YASMIN [Suspect]
  2. VITAMIN D [Concomitant]
     Dosage: 2000 U, DAILY
     Route: 048
  3. CITALOPRAM [Concomitant]
     Indication: DEPRESSION
     Dosage: 40 MG, DAILY
     Route: 048
  4. SYNTHROID [Concomitant]
     Dosage: 0.2 MG, DAILY
     Route: 048
  5. DILAUDID [Concomitant]
  6. PERCOCET [Concomitant]

REACTIONS (1)
  - Pulmonary embolism [None]
